FAERS Safety Report 5563134-4 (Version None)
Quarter: 2007Q4

REPORT INFORMATION
  Report Type: 
  Country: None (occurrence: None)
  Receive Date: 20071217
  Receipt Date: 20071212
  Transmission Date: 20080405
  Serious: Yes (Congenital Anomaly)
  Sender: FDA-Public Use
  Company Number: B0492626A

PATIENT

DRUGS (10)
  1. PAXIL [Suspect]
     Indication: DEPRESSION
     Dates: start: 20040804, end: 20041201
  2. TOFRANIL [Suspect]
     Indication: DEPRESSIVE SYMPTOM
     Dosage: 20MG TWICE PER DAY
     Dates: start: 20041110, end: 20041116
  3. PRIMPERAN INJ [Suspect]
     Indication: NAUSEA
     Dosage: 5MG PER DAY
     Dates: start: 20040804, end: 20041130
  4. RIZE [Concomitant]
     Indication: ANXIETY
     Dosage: 5MG PER DAY
     Dates: start: 20040608, end: 20040101
  5. SOLANAX [Concomitant]
     Indication: ANXIETY
     Dosage: .4MG PER DAY
     Dates: start: 20040710, end: 20040722
  6. NAUZELIN [Concomitant]
  7. LUVOX [Concomitant]
  8. RISUMIC [Concomitant]
     Indication: DIZZINESS POSTURAL
     Dosage: 10MG PER DAY
     Dates: start: 20040906, end: 20040925
  9. RINDERON [Concomitant]
     Indication: PRURITUS
     Dates: start: 20041012
  10. MYCOSPOR [Concomitant]
     Indication: FUNGAL INFECTION
     Dates: start: 20041012

REACTIONS (7)
  - ABASIA [None]
  - ASTHENIA [None]
  - COORDINATION ABNORMAL [None]
  - DEVELOPMENTAL DELAY [None]
  - DRUG EXPOSURE DURING PREGNANCY [None]
  - GAIT DISTURBANCE [None]
  - LIMB MALFORMATION [None]
